FAERS Safety Report 4903415-8 (Version None)
Quarter: 2006Q1

REPORT INFORMATION
  Report Type: 
  Country: None (occurrence: None)
  Receive Date: 20060203
  Receipt Date: 20060116
  Transmission Date: 20060701
  Serious: Yes (Hospitalization, Other)
  Sender: FDA-Public Use
  Company Number: 2006BI000705

PATIENT
  Age: 40 Year
  Sex: Male

DRUGS (9)
  1. ZEVALIN (IBRITUMOMAB TIUXETAN) [Suspect]
     Indication: NON-HODGKIN'S LYMPHOMA
     Dosage: 1X; IV
     Route: 042
  2. ZEVALIN (IBRITUMOMAB TIUXETAN) [Suspect]
     Indication: NON-HODGKIN'S LYMPHOMA
     Dosage: 1X; IV
     Route: 042
     Dates: start: 20051110, end: 20051110
  3. RITUXIMAB [Concomitant]
  4. LAMICTAL [Concomitant]
  5. DEXAMETHASONE SODIUM PHOSPHATE [Concomitant]
  6. AMPHO-MORONAL [Concomitant]
  7. MACROGOL [Concomitant]
  8. RITUXIMAB [Concomitant]
  9. GLANDOMED [Concomitant]

REACTIONS (4)
  - EXTREMITY NECROSIS [None]
  - GANGRENE [None]
  - NAIL DISORDER [None]
  - PAIN [None]
